FAERS Safety Report 11222340 (Version 1)
Quarter: 2015Q2

REPORT INFORMATION
  Report Type: Spontaneous
  Country: US (occurrence: US)
  Receive Date: 20150626
  Receipt Date: 20150626
  Transmission Date: 20150821
  Serious: Yes (Other)
  Sender: FDA-Public Use
  Company Number: US-BAYER-2015-361422

PATIENT
  Age: 29 Year
  Sex: Female

DRUGS (1)
  1. MIRENA [Suspect]
     Active Substance: LEVONORGESTREL
     Indication: CONTRACEPTION
     Dosage: 20 MCG/24HR, CONT
     Route: 015
     Dates: start: 2012, end: 20141231

REACTIONS (7)
  - Procedural pain [None]
  - Device difficult to use [None]
  - Complication of device removal [None]
  - Vulvovaginal discomfort [None]
  - Abdominal discomfort [None]
  - Discomfort [None]
  - Embedded device [None]
